FAERS Safety Report 5991500-1 (Version None)
Quarter: 2008Q4

REPORT INFORMATION
  Report Type: 
  Country: None (occurrence: None)
  Receive Date: 20081202
  Receipt Date: 20080616
  Transmission Date: 20090506
  Serious: Yes (Other)
  Sender: FDA-Public Use
  Company Number: WAES 0605USA00847

PATIENT
  Age: 69 Year
  Sex: Female
  Weight: 72.5755 kg

DRUGS (2)
  1. FOSAMAX [Suspect]
     Indication: OSTEOPOROSIS
     Dosage: 10 MG/DAILY/PO
     Route: 048
     Dates: start: 19980220, end: 20000701
  2. AREDIA [Suspect]
     Dosage: MTH/IV
     Route: 042
     Dates: start: 20000701

REACTIONS (23)
  - ACUTE SINUSITIS [None]
  - BREAST CANCER METASTATIC [None]
  - CATARACT [None]
  - DIZZINESS [None]
  - DYSPNOEA [None]
  - EAR PAIN [None]
  - EMOTIONAL DISTRESS [None]
  - EPISTAXIS [None]
  - EYE DISORDER [None]
  - INFLUENZA LIKE ILLNESS [None]
  - LUNG DISORDER [None]
  - LYMPHADENOPATHY [None]
  - NASAL VESTIBULITIS [None]
  - OSTEOMYELITIS [None]
  - OSTEONECROSIS [None]
  - RASH [None]
  - SALIVARY GLAND DISORDER [None]
  - SINUSITIS [None]
  - URTICARIA [None]
  - VEIN DISORDER [None]
  - VENTRICULAR EXTRASYSTOLES [None]
  - VIRAL SKIN INFECTION [None]
  - VOCAL CORD PARALYSIS [None]
